FAERS Safety Report 6764021-6 (Version None)
Quarter: 2010Q2

REPORT INFORMATION
  Report Type: 
  Country: None (occurrence: None)
  Receive Date: 20100610
  Receipt Date: 20091005
  Transmission Date: 20101027
  Serious: Yes (Hospitalization)
  Sender: FDA-Public Use
  Company Number: US-ASTRAZENECA-2009SE17980

PATIENT
  Age: 74 Year
  Sex: Female

DRUGS (8)
  1. FULVESTRANT [Suspect]
     Indication: BREAST CANCER
     Route: 030
     Dates: start: 20090818, end: 20090915
  2. DASATINIB [Suspect]
     Indication: BREAST CANCER
     Route: 048
     Dates: start: 20090818, end: 20090915
  3. TRAZODONE HCL [Concomitant]
     Dates: start: 20081017
  4. ACETAMINOPHEN AND HYDROCODONE [Concomitant]
     Dates: start: 20090707
  5. MORPHINE [Concomitant]
     Dates: start: 20090724
  6. MS CONTIN [Concomitant]
     Dates: start: 20090724
  7. NEXIUM [Concomitant]
     Dates: start: 20090810
  8. COMPAZINE [Concomitant]
     Dates: start: 20090810

REACTIONS (3)
  - DIARRHOEA [None]
  - NAUSEA [None]
  - VOMITING [None]
